FAERS Safety Report 8683676 (Version 3)
Quarter: 2012Q4

REPORT INFORMATION
  Report Type: 
  Country: US (occurrence: US)
  Receive Date: 20120726
  Receipt Date: 20121025
  Transmission Date: 20130627
  Serious: Yes (Hospitalization, Other)
  Sender: FDA-Public Use
  Company Number: PHEH2012US014222

PATIENT
  Age: 44 Year
  Sex: Female
  Weight: 77.1 kg

DRUGS (4)
  1. GILENYA [Suspect]
     Indication: MULTIPLE SCLEROSIS
     Dosage: 0.5 mg, QD
     Route: 048
     Dates: start: 2010
  2. NEURONTIN [Concomitant]
     Indication: MULTIPLE SCLEROSIS
     Dosage: 300 mg, PRN
     Route: 048
     Dates: start: 200511
  3. EFEXOR XR [Concomitant]
     Indication: DEPRESSION
     Dosage: 75 mg, QD
     Route: 048
     Dates: start: 2000
  4. LAMICTAL [Concomitant]
     Indication: ANXIETY
     Dosage: 10 mg, QD
     Route: 048
     Dates: start: 2009

REACTIONS (12)
  - Road traffic accident [Recovered/Resolved]
  - Facial bones fracture [Recovered/Resolved]
  - Foot fracture [Recovered/Resolved]
  - Hand fracture [Recovered/Resolved]
  - Upper limb fracture [Recovered/Resolved]
  - Rib fracture [Recovered/Resolved]
  - Scapula fracture [Recovered/Resolved]
  - Pneumothorax traumatic [Recovered/Resolved]
  - Contusion [Recovering/Resolving]
  - Joint dislocation [Recovering/Resolving]
  - Laryngeal injury [Unknown]
  - Vocal cord paralysis [Unknown]
